FAERS Safety Report 8237810-9 (Version None)
Quarter: 2012Q1

REPORT INFORMATION
  Report Type: 
  Country: None (occurrence: None)
  Receive Date: 20120326
  Receipt Date: 20120312
  Transmission Date: 20120608
  Serious: Yes (Death, Life-Threatening, Hospitalization, Other)
  Sender: FDA-Public Use
  Company Number: 2008AL008239

PATIENT
  Age: 63 Year
  Sex: Male
  Weight: 94 kg

DRUGS (14)
  1. DIGOXIN [Suspect]
     Indication: HEART RATE IRREGULAR
     Dosage: 0.125 MG;QOD;PO
     Route: 048
     Dates: start: 19981113, end: 20080116
  2. VICODIN [Concomitant]
  3. MIDODRINE HYDROCHLORIDE [Concomitant]
  4. ZITHROMAX [Concomitant]
  5. CALCIUM ACETATE [Concomitant]
  6. CALCIUM ACETATE [Concomitant]
  7. ASPIRIN [Concomitant]
  8. WARFARIN SODIUM [Concomitant]
  9. DARVOCET-N 100 [Concomitant]
  10. METOPROLOL SUCCINATE [Concomitant]
  11. VERAPAMIL [Concomitant]
  12. TYLENOL [Concomitant]
  13. PHOSLO [Concomitant]
  14. TYLOX [Concomitant]

REACTIONS (68)
  - HYPOTENSION [None]
  - HYPERHIDROSIS [None]
  - JOINT SWELLING [None]
  - CARDIOMYOPATHY [None]
  - PULMONARY ARTERIAL PRESSURE INCREASED [None]
  - MYOCARDIAL ISCHAEMIA [None]
  - VOMITING [None]
  - ACTIVITIES OF DAILY LIVING IMPAIRED [None]
  - RESPIRATORY FAILURE [None]
  - OSTEONECROSIS [None]
  - TRICUSPID VALVE INCOMPETENCE [None]
  - ARTHROPATHY [None]
  - ONYCHOMYCOSIS [None]
  - HYPERTENSION [None]
  - ARTHRALGIA [None]
  - CARDIAC MURMUR [None]
  - UNRESPONSIVE TO STIMULI [None]
  - MITRAL VALVE INCOMPETENCE [None]
  - KIDNEY ENLARGEMENT [None]
  - MITRAL VALVE STENOSIS [None]
  - NO THERAPEUTIC RESPONSE [None]
  - OCCULT BLOOD POSITIVE [None]
  - HAEMOGLOBIN DECREASED [None]
  - VENTRICULAR EXTRASYSTOLES [None]
  - ARCUS LIPOIDES [None]
  - BLOOD PRESSURE IMMEASURABLE [None]
  - DYSPHAGIA [None]
  - ATRIAL FIBRILLATION [None]
  - ARRHYTHMIA [None]
  - LEG AMPUTATION [None]
  - BURSITIS [None]
  - HYPERKALAEMIA [None]
  - CORONARY ARTERY DISEASE [None]
  - SHUNT ANEURYSM [None]
  - ATELECTASIS [None]
  - AORTIC ARTERIOSCLEROSIS [None]
  - CARDIAC FAILURE CONGESTIVE [None]
  - FLUID RETENTION [None]
  - RENAL DISORDER [None]
  - PULMONARY OEDEMA [None]
  - ABDOMINAL PAIN [None]
  - RENAL FAILURE CHRONIC [None]
  - SLEEP APNOEA SYNDROME [None]
  - GASTROINTESTINAL SOUNDS ABNORMAL [None]
  - CONVULSION [None]
  - MULTI-ORGAN FAILURE [None]
  - PULMONARY CONGESTION [None]
  - CALCINOSIS [None]
  - HEART RATE IRREGULAR [None]
  - NAUSEA [None]
  - COR PULMONALE [None]
  - RENAL CYST [None]
  - NEPHROLITHIASIS [None]
  - ANION GAP INCREASED [None]
  - BLISTER [None]
  - INTRACARDIAC THROMBUS [None]
  - ABASIA [None]
  - PALPITATIONS [None]
  - AMPUTATION STUMP PAIN [None]
  - VASCULAR GRAFT THROMBOSIS [None]
  - TREATMENT NONCOMPLIANCE [None]
  - RESPIRATORY ARREST [None]
  - PROTHROMBIN TIME PROLONGED [None]
  - INTERNATIONAL NORMALISED RATIO DECREASED [None]
  - AORTIC VALVE INCOMPETENCE [None]
  - ARTERIOSCLEROSIS [None]
  - THROMBOSIS IN DEVICE [None]
  - AORTIC STENOSIS [None]
